FAERS Safety Report 21962881 (Version 2)
Quarter: 2023Q2

REPORT INFORMATION
  Report Type: Report from Study
  Country: DE (occurrence: DE)
  Receive Date: 20230207
  Receipt Date: 20230403
  Transmission Date: 20230722
  Serious: Yes (Death, Other)
  Sender: FDA-Public Use
  Company Number: DE-BRISTOL-MYERS SQUIBB COMPANY-2023-012129

PATIENT
  Age: 84 Year
  Sex: Male
  Weight: 110 kg

DRUGS (5)
  1. PEMETREXED [Suspect]
     Active Substance: PEMETREXED
     Indication: Non-small cell lung cancer
     Dosage: DAILY DOSE 1100 MG
     Dates: start: 20221206
  2. PEMETREXED [Suspect]
     Active Substance: PEMETREXED
     Dosage: 850 MG
     Dates: end: 20221228
  3. NIVOLUMAB [Suspect]
     Active Substance: NIVOLUMAB
     Indication: Non-small cell lung cancer
     Dosage: DAILY DOSE 360 MG
     Dates: start: 20221206, end: 20221228
  4. CARBOPLATIN [Suspect]
     Active Substance: CARBOPLATIN
     Indication: Non-small cell lung cancer
     Dosage: DAILY DOSE 290 MG
     Dates: start: 20221206
  5. CARBOPLATIN [Suspect]
     Active Substance: CARBOPLATIN
     Dosage: 240 MG
     Dates: end: 20221228

REACTIONS (4)
  - Sepsis [Fatal]
  - Pancytopenia [Fatal]
  - Renal failure [Unknown]
  - Stomatitis [Unknown]
